FAERS Safety Report 4518920-6 (Version None)
Quarter: 2004Q4

REPORT INFORMATION
  Report Type: 
  Country: None (occurrence: None)
  Receive Date: 20041203
  Receipt Date: 20041203
  Transmission Date: 20050328
  Serious: Yes (Hospitalization, Other)
  Sender: FDA-Public Use
  Company Number: None

PATIENT
  Age: 86 Year
  Sex: Female

DRUGS (16)
  1. BEXTRA [Suspect]
     Indication: SURGERY
     Dosage: 20 MG Q 12 H PRN
     Dates: start: 20041123, end: 20041129
  2. ANCEF [Concomitant]
  3. MORPHINE [Concomitant]
  4. DEMEROL [Concomitant]
  5. TYLENOL (CAPLET) [Concomitant]
  6. COMPAZINE [Concomitant]
  7. RESTORIL [Concomitant]
  8. FERROUS GLUCONATE [Concomitant]
  9. VIT C [Concomitant]
  10. BEXTRA [Concomitant]
  11. VICODIN [Concomitant]
  12. OXYCONTIN [Concomitant]
  13. ALUMINUM HYDROXIDE AND MAGNESIUM TRISILICATE [Concomitant]
  14. MOM [Concomitant]
  15. COLACE [Concomitant]
  16. SENOKOT [Concomitant]

REACTIONS (3)
  - CEREBROVASCULAR ACCIDENT [None]
  - HEMIPLEGIA [None]
  - VISUAL DISTURBANCE [None]
